FAERS Safety Report 5201981-9 (Version None)
Quarter: 2007Q1

REPORT INFORMATION
  Report Type: 
  Country: None (occurrence: None)
  Receive Date: 20070104
  Receipt Date: 20070104
  Transmission Date: 20070707
  Serious: Yes (Hospitalization)
  Sender: FDA-Public Use
  Company Number: None

PATIENT
  Sex: Male
  Weight: 77.1115 kg

DRUGS (6)
  1. OXALIPLATIN [Suspect]
     Indication: GASTRIC CANCER
     Dosage: 133MG Q2WK IV
     Route: 042
     Dates: start: 20060901, end: 20061212
  2. XELODA [Suspect]
     Indication: GASTRIC CANCER
     Dosage: 800MG BID X 7 DAYS Q2 WK PO
     Route: 048
     Dates: start: 20060901, end: 20061218
  3. METOPROLOL SUCCINATE [Concomitant]
  4. IMDUR [Concomitant]
  5. PACERONE [Concomitant]
  6. FLOMAX [Concomitant]

REACTIONS (2)
  - CHEST PAIN [None]
  - SYNCOPE [None]
